FAERS Safety Report 11627903 (Version 1)
Quarter: 2015Q4

REPORT INFORMATION
  Report Type: Spontaneous
  Country: US (occurrence: None)
  Receive Date: 20151013
  Receipt Date: 20151013
  Transmission Date: 20160304
  Serious: Yes (Other)
  Sender: FDA-Public Use
  Company Number: None

PATIENT
  Age: 64 Year
  Sex: Female

DRUGS (2)
  1. RIBASPHERE [Suspect]
     Active Substance: RIBAVIRIN
     Indication: HEPATITIS C
     Dosage: 400 MG AM + 600 MG PM
     Route: 048
     Dates: start: 20150902
  2. SOVALDI [Suspect]
     Active Substance: SOFOSBUVIR
     Indication: HEPATITIS C
     Route: 048
     Dates: start: 20150902

REACTIONS (3)
  - Dyspnoea exertional [None]
  - Nausea [None]
  - Chronic obstructive pulmonary disease [None]

NARRATIVE: CASE EVENT DATE: 20151009
